FAERS Safety Report 10985664 (Version 1)
Quarter: 2015Q2

REPORT INFORMATION
  Report Type: Spontaneous
  Country: US (occurrence: None)
  Receive Date: 20150403
  Receipt Date: 20150403
  Transmission Date: 20150821
  Serious: Yes (Other)
  Sender: FDA-Public Use
  Company Number: None

PATIENT
  Age: 63 Year
  Sex: Male
  Weight: 74.39 kg

DRUGS (3)
  1. TRAZODONE 100 MG GENERIC VETERAN ADMINRX [Suspect]
     Active Substance: TRAZODONE HYDROCHLORIDE
     Indication: INSOMNIA
     Dosage: 30 TABS QHS/BEDTIME ORAL
     Route: 048
     Dates: start: 20150326, end: 20150330
  2. MULTIVITS [Concomitant]
  3. NORVASC [Concomitant]
     Active Substance: AMLODIPINE BESYLATE

REACTIONS (9)
  - Pruritus [None]
  - Priapism [None]
  - Dry mouth [None]
  - Paraesthesia [None]
  - Vision blurred [None]
  - Chorea [None]
  - Penile pain [None]
  - Excoriation [None]
  - Osteoarthritis [None]

NARRATIVE: CASE EVENT DATE: 20150327
